FAERS Safety Report 16694335 (Version 2)
Quarter: 2019Q3

REPORT INFORMATION
  Report Type: Spontaneous
  Country: JP (occurrence: JP)
  Receive Date: 20190812
  Receipt Date: 20190906
  Transmission Date: 20191004
  Serious: Yes (Hospitalization, Other)
  Sender: FDA-Public Use
  Company Number: JP-ACTELION-A-CH2019-193970

PATIENT
  Age: 21 Year
  Sex: Female

DRUGS (2)
  1. OPSUMIT [Suspect]
     Active Substance: MACITENTAN
     Indication: PORTOPULMONARY HYPERTENSION
     Route: 048
  2. AMBRISENTAN [Concomitant]
     Active Substance: AMBRISENTAN

REACTIONS (6)
  - Liver transplant [Unknown]
  - Dizziness [Recovered/Resolved]
  - Vascular resistance pulmonary [Unknown]
  - Adverse reaction [Unknown]
  - Condition aggravated [Unknown]
  - Headache [Recovered/Resolved]
